FAERS Safety Report 8257603-6 (Version None)
Quarter: 2012Q2

REPORT INFORMATION
  Report Type: 
  Country: None (occurrence: None)
  Receive Date: 20120403
  Receipt Date: 20120321
  Transmission Date: 20120825
  Serious: Yes (Hospitalization)
  Sender: FDA-Public Use
  Company Number: GXBR2012US000918

PATIENT
  Sex: Male

DRUGS (8)
  1. SINGULAIR [Concomitant]
     Dosage: UNK DF, UNK
  2. DABIGATRAN [Concomitant]
     Dosage: UNK DF, UNK
  3. ATORVASTATIN [Concomitant]
     Dosage: UNK DF, UNK
  4. FUROSEMIDE [Concomitant]
     Dosage: UNK DF, UNK
  5. JANUVIA [Concomitant]
     Dosage: UNK DF, UNK
  6. ZETIA [Concomitant]
     Dosage: UNK DF, UNK
  7. POTASSIUM CHLORIDE [Concomitant]
     Dosage: UNK DF, UNK
  8. AMIODARONE HYDROCHLORIDE [Suspect]
     Indication: VENTRICULAR TACHYCARDIA
     Dosage: 400 MG, QD
     Route: 048
     Dates: start: 20120201

REACTIONS (6)
  - TREMOR [None]
  - FALL [None]
  - VERTIGO [None]
  - ASTHENIA [None]
  - RASH ERYTHEMATOUS [None]
  - CONVULSION [None]
